FAERS Safety Report 16197639 (Version 1)
Quarter: 2019Q2

REPORT INFORMATION
  Report Type: Spontaneous
  Country: US (occurrence: US)
  Receive Date: 20190311
  Receipt Date: 20190311
  Transmission Date: 20190711
  Serious: Yes (Hospitalization)
  Sender: FDA-Public Use
  Company Number: None

PATIENT
  Age: 86 Year
  Sex: Male

DRUGS (22)
  1. ISOSORB MONO TAB [Concomitant]
  2. HYDRO/APAP [Concomitant]
     Active Substance: ACETAMINOPHEN\HYDROCODONE
  3. VITAMIN D 1000 UNITS SOFT GEL CAPS REXALL [Suspect]
     Active Substance: VITAMIN D NOS
  4. ISONIAZID 300 MG [Concomitant]
     Active Substance: ISONIAZID
  5. A-HYDROCORT [Concomitant]
     Active Substance: HYDROCORTISONE SODIUM SUCCINATE
  6. LEVOFLUXACTX 750 MG [Concomitant]
  7. ERLEADA [Suspect]
     Active Substance: APALUTAMIDE
     Indication: PROSTATE CANCER
     Route: 048
     Dates: start: 20190208
  8. ONDANSETRON [Concomitant]
     Active Substance: ONDANSETRON
  9. CLOPIDOGREL [Concomitant]
     Active Substance: CLOPIDOGREL BISULFATE
  10. OMEPRAZOLE 20MG [Concomitant]
     Active Substance: OMEPRAZOLE
  11. ASPIRIN 81 MG EC [Concomitant]
     Active Substance: ASPIRIN
  12. TRALZODONE 50MG [Concomitant]
  13. LUPRON DEPOT [Concomitant]
     Active Substance: LEUPROLIDE ACETATE
  14. FUROSEMIDE 20G [Concomitant]
  15. LACTULOSE 10GM/15 ML [Concomitant]
  16. FLUTICASONE SPRAY [Concomitant]
     Active Substance: FLUTICASONE
  17. BENZONATATE. [Concomitant]
     Active Substance: BENZONATATE
  18. ENALAPRIL 2.5MG [Concomitant]
  19. BREO ELLIPTA [Concomitant]
     Active Substance: FLUTICASONE FUROATE\VILANTEROL TRIFENATATE
  20. ATORVASTATIN 80 MG [Concomitant]
     Active Substance: ATORVASTATIN
  21. PRAMIPEXOLE. [Concomitant]
     Active Substance: PRAMIPEXOLE
  22. ??PARVEDILOL 6.25 MG [Concomitant]

REACTIONS (2)
  - Back pain [None]
  - Pancreatitis [None]

NARRATIVE: CASE EVENT DATE: 20190308
